FAERS Safety Report 6626831-5 (Version None)
Quarter: 2010Q1

REPORT INFORMATION
  Report Type: 
  Country: None (occurrence: None)
  Receive Date: 20100308
  Receipt Date: 20100222
  Transmission Date: 20100710
  Serious: Yes (Death, Congenital Anomaly, Other)
  Sender: FDA-Public Use
  Company Number: RENA-1000550

PATIENT
  Sex: Female
  Weight: 1 kg

DRUGS (8)
  1. RENAGEL [Suspect]
     Indication: HYPERPHOSPHATAEMIA
     Dosage: 1.6 G, TID, TRANSPLACENTAL; 0.8 G, TID,
     Route: 064
     Dates: start: 20090101
  2. RENAGEL [Suspect]
     Indication: HYPERPHOSPHATAEMIA
     Dosage: 1.6 G, TID, TRANSPLACENTAL; 0.8 G, TID,
     Route: 064
     Dates: start: 20090629
  3. ENALAPRIL MALEATE [Concomitant]
  4. AMLODIPINE (AMLODIPINE MESILATE) [Concomitant]
  5. ROCALTROL [Concomitant]
  6. ERITROPOYETINA [Concomitant]
  7. BENUTREX (ASCORBIC ACID, CALCIUM PANTOTHENATE, CYANOCOBALAMIN, NICOTIN [Concomitant]
  8. ACIDO FOLICO (FOLIC ACID) [Concomitant]

REACTIONS (6)
  - CONGENITAL ANOMALY [None]
  - DEATH NEONATAL [None]
  - FEEDING DISORDER NEONATAL [None]
  - MATERNAL DRUGS AFFECTING FOETUS [None]
  - OROPHARYNGEAL PLAQUE [None]
  - PREMATURE BABY [None]
